FAERS Safety Report 6669974-2 (Version None)
Quarter: 2010Q2

REPORT INFORMATION
  Report Type: 
  Country: None (occurrence: None)
  Receive Date: 20100406
  Receipt Date: 20100126
  Transmission Date: 20101027
  Serious: No
  Sender: FDA-Public Use
  Company Number: US-ALLERGAN-1001035US

PATIENT
  Age: 54 Year
  Sex: Female

DRUGS (2)
  1. LATISSE [Suspect]
     Indication: GROWTH OF EYELASHES
     Dosage: 1 GTT, QHS
     Route: 061
     Dates: start: 20090901, end: 20091201
  2. LATISSE [Suspect]
     Dosage: 1 GTT, EVERY 2 TO 3 DAYS
     Route: 061
     Dates: start: 20091201, end: 20100123

REACTIONS (5)
  - APPLICATION SITE PRURITUS [None]
  - EYELIDS PRURITUS [None]
  - INCORRECT DOSE ADMINISTERED [None]
  - MADAROSIS [None]
  - WRONG TECHNIQUE IN DRUG USAGE PROCESS [None]
